FAERS Safety Report 5871058-8 (Version None)
Quarter: 2008Q3

REPORT INFORMATION
  Report Type: 
  Country: None (occurrence: None)
  Receive Date: 20080902
  Receipt Date: 20080820
  Transmission Date: 20090109
  Serious: Yes (Hospitalization)
  Sender: FDA-Public Use
  Company Number: 2008AL009767

PATIENT
  Age: 64 Year
  Sex: Male

DRUGS (1)
  1. DIGOXIN [Suspect]
     Indication: CARDIAC DISORDER
     Dosage: 0.25 MG DAILY PO
     Route: 048
     Dates: start: 20070213, end: 20080531

REACTIONS (3)
  - ASTHENIA [None]
  - HYPOPHAGIA [None]
  - SEXUAL DYSFUNCTION [None]
